FAERS Safety Report 7938376-0 (Version None)
Quarter: 2011Q4

REPORT INFORMATION
  Report Type: 
  Country: None (occurrence: None)
  Receive Date: 20111123
  Receipt Date: 20111118
  Transmission Date: 20120403
  Serious: Yes (Hospitalization)
  Sender: FDA-Public Use
  Company Number: US-GLAXOSMITHKLINE-A0760224A

PATIENT
  Age: 61 Year
  Sex: Female
  Weight: 56.8 kg

DRUGS (8)
  1. ASPIRIN [Concomitant]
  2. PLAVIX [Concomitant]
  3. AVANDIA [Suspect]
     Indication: TYPE 2 DIABETES MELLITUS
     Dosage: 4MG PER DAY
     Route: 048
     Dates: start: 20060201, end: 20080121
  4. LEVOTHYROXINE SODIUM [Concomitant]
  5. METFORMIN [Concomitant]
  6. PREVACID [Concomitant]
  7. MULTI-VITAMIN [Concomitant]
  8. LISINOPRIL [Concomitant]

REACTIONS (8)
  - CARDIAC VALVE DISEASE [None]
  - ARTERIOSCLEROSIS [None]
  - CARDIOMYOPATHY [None]
  - CARDIAC FAILURE CONGESTIVE [None]
  - CORONARY ARTERY DISEASE [None]
  - MYOCARDIAL INFARCTION [None]
  - HEART INJURY [None]
  - MITRAL VALVE INCOMPETENCE [None]
